FAERS Safety Report 19206940 (Version 1)
Quarter: 2021Q2

REPORT INFORMATION
  Report Type: Report from Study
  Country: BR (occurrence: BR)
  Receive Date: 20210503
  Receipt Date: 20210503
  Transmission Date: 20210717
  Serious: Yes (Hospitalization, Other)
  Sender: FDA-Public Use
  Company Number: BR-SHIRE-BR201842918AA

PATIENT

DRUGS (3)
  1. FACTOR VIII INHIBITOR BYPASSING FRACTION; BAXJECT II NF [Suspect]
     Active Substance: ANTI-INHIBITOR COAGULANT COMPLEX
     Dosage: 1.25 IU, 4X A WEEK
     Route: 065
     Dates: start: 20161201
  2. HEMO?8R [Suspect]
     Active Substance: ANTIHEMOPHILIC FACTOR, HUMAN RECOMBINANT
     Indication: FACTOR VIII DEFICIENCY
     Dosage: 750 INTERNATIONAL UNIT, 3/WEEK
     Route: 042
  3. FACTOR VIII INHIBITOR BYPASSING FRACTION; BAXJECT II NF [Suspect]
     Active Substance: ANTI-INHIBITOR COAGULANT COMPLEX
     Indication: FACTOR VIII DEFICIENCY
     Dosage: UNK, INJECTION 2X A WEEK
     Route: 065

REACTIONS (11)
  - Fall [Unknown]
  - Haemorrhage [Unknown]
  - Anti factor VIII antibody increased [Recovered/Resolved]
  - Postoperative thrombosis [Recovered/Resolved]
  - Drug ineffective [Recovered/Resolved]
  - Dermatitis atopic [Unknown]
  - Internal haemorrhage [Recovered/Resolved]
  - Head injury [Unknown]
  - Poor venous access [Unknown]
  - Contusion [Unknown]
  - Product dose omission issue [Unknown]
